FAERS Safety Report 7600299-4 (Version None)
Quarter: 2011Q3

REPORT INFORMATION
  Report Type: 
  Country: None (occurrence: None)
  Receive Date: 20110706
  Receipt Date: 20110706
  Transmission Date: 20111222
  Serious: No
  Sender: FDA-Public Use
  Company Number: None

PATIENT
  Sex: Male
  Weight: 89.3586 kg

DRUGS (1)
  1. PROPECIA [Suspect]
     Indication: ALOPECIA
     Dosage: 1 MG  DAILY PO
     Route: 048

REACTIONS (3)
  - LIBIDO DECREASED [None]
  - EJACULATION DISORDER [None]
  - ANHEDONIA [None]
